FAERS Safety Report 9462502 (Version 1)
Quarter: 2013Q3

REPORT INFORMATION
  Report Type: Spontaneous
  Country: US (occurrence: None)
  Receive Date: 20130815
  Receipt Date: 20130815
  Transmission Date: 20140515
  Serious: Yes (Hospitalization)
  Sender: FDA-Public Use
  Company Number: None

PATIENT
  Age: 18 Year
  Sex: Male
  Weight: 67.8 kg

DRUGS (4)
  1. MERCAPTOPURINE [Suspect]
  2. METHOTREXATE [Suspect]
  3. PREDNISONE [Suspect]
  4. VINCRISTINE SULFATE [Suspect]

REACTIONS (6)
  - Hyperbilirubinaemia [None]
  - Abdominal discomfort [None]
  - Jaundice [None]
  - Pancytopenia [None]
  - Ascites [None]
  - Toxicity to various agents [None]
